FAERS Safety Report 4455589-3 (Version None)
Quarter: 2004Q3

REPORT INFORMATION
  Report Type: 
  Country: None (occurrence: None)
  Receive Date: 20040917
  Receipt Date: 20040908
  Transmission Date: 20050211
  Serious: Yes (Other)
  Sender: FDA-Public Use
  Company Number: USA040876822

PATIENT
  Age: 55 Year
  Sex: Female

DRUGS (5)
  1. CYMBALTA [Suspect]
     Indication: DEPRESSION
     Dosage: 60 MG/1 DAY
     Dates: start: 20040817
  2. STRATTERA [Suspect]
     Indication: DEPRESSION
  3. PROZAC [Suspect]
  4. LEXAPRO [Concomitant]
  5. GEODON [Concomitant]

REACTIONS (5)
  - DEPRESSION [None]
  - FALL [None]
  - INJURY [None]
  - LOSS OF CONSCIOUSNESS [None]
  - SYNCOPE [None]
